FAERS Safety Report 23424971 (Version 3)
Quarter: 2024Q1

REPORT INFORMATION
  Report Type: Spontaneous
  Country: US (occurrence: US)
  Receive Date: 20240121
  Receipt Date: 20240328
  Transmission Date: 20240410
  Serious: No
  Sender: FDA-Public Use
  Company Number: US-SA-SAC20240112001119

PATIENT
  Age: 50 Year
  Sex: Female

DRUGS (1)
  1. DUPIXENT [Suspect]
     Active Substance: DUPILUMAB
     Indication: Dermatitis atopic
     Dosage: 300 MG, QOW
     Route: 058
     Dates: end: 2023

REACTIONS (10)
  - Dry skin [Unknown]
  - Chills [Unknown]
  - Headache [Unknown]
  - Nausea [Unknown]
  - Spinal pain [Unknown]
  - SARS-CoV-2 test positive [Unknown]
  - Sleep disorder [Unknown]
  - Skin exfoliation [Unknown]
  - Pruritus [Unknown]
  - Arthralgia [Unknown]
